FAERS Safety Report 6678832-9 (Version None)
Quarter: 2010Q2

REPORT INFORMATION
  Report Type: 
  Country: None (occurrence: None)
  Receive Date: 20100413
  Receipt Date: 20100406
  Transmission Date: 20101027
  Serious: Yes (Hospitalization)
  Sender: FDA-Public Use
  Company Number: US-SANOFI-AVENTIS-2010SA016048

PATIENT
  Age: 86 Year
  Sex: Female
  Weight: 58.63 kg

DRUGS (6)
  1. PLAVIX [Suspect]
     Indication: TRANSIENT ISCHAEMIC ATTACK
     Route: 048
  2. METOPROLOL TARTRATE [Concomitant]
  3. FEMARA [Concomitant]
     Indication: SURGERY
  4. SYNTHROID [Concomitant]
  5. MULTI-VITAMINS [Concomitant]
  6. VITAMIN D [Concomitant]

REACTIONS (3)
  - CONTUSION [None]
  - OFF LABEL USE [None]
  - RENAL DISORDER [None]
